FAERS Safety Report 7278041-9 (Version None)
Quarter: 2011Q1

REPORT INFORMATION
  Report Type: 
  Country: None (occurrence: None)
  Receive Date: 20110207
  Receipt Date: 20110126
  Transmission Date: 20110831
  Serious: Yes (Death, Life-Threatening, Other)
  Sender: FDA-Public Use
  Company Number: JP-BAYER-2011-000714

PATIENT
  Sex: Male
  Weight: 52 kg

DRUGS (10)
  1. SELBEX [Concomitant]
     Indication: GASTRIC MUCOSAL LESION
     Dosage: 150 MG, QD
     Route: 048
     Dates: start: 20100929, end: 20110111
  2. INDERAL [Concomitant]
     Indication: BLOOD PRESSURE INCREASED
     Dosage: 20 MG, QD
     Route: 048
     Dates: start: 20100929, end: 20110111
  3. ATARAX [Concomitant]
     Indication: PRURITUS
     Dosage: 75 MG, QD
     Route: 048
     Dates: start: 20100929, end: 20110111
  4. NEXAVAR [Suspect]
     Indication: RENAL CELL CARCINOMA
     Dosage: 400 MG, QD
     Route: 048
     Dates: start: 20100929, end: 20101025
  5. DIOVAN [Concomitant]
     Indication: BLOOD PRESSURE INCREASED
     Dosage: 80 MG, QD
     Route: 048
     Dates: start: 20100929, end: 20110111
  6. NEXAVAR [Suspect]
     Dosage: 800 MG, QD
     Route: 048
     Dates: start: 20101026, end: 20101212
  7. ADALAT [Concomitant]
     Indication: BLOOD PRESSURE INCREASED
     Dosage: 20 MG, QD
     Route: 048
     Dates: start: 20100929, end: 20110111
  8. TEGRETOL [Concomitant]
     Indication: EPILEPSY
     Dosage: 200 MG, QD
     Route: 048
     Dates: start: 20100929, end: 20110111
  9. ADONA [Concomitant]
     Indication: HAEMOSTASIS
     Dosage: 90 MG, QD
     Route: 048
     Dates: start: 20100929, end: 20110111
  10. MAGMITT [Concomitant]
     Indication: CONSTIPATION
     Dosage: 1500 MG, QD
     Route: 048
     Dates: start: 20100929, end: 20110111

REACTIONS (5)
  - PNEUMOTHORAX [None]
  - SHOCK HAEMORRHAGIC [None]
  - RESPIRATORY FAILURE [None]
  - TUMOUR HAEMORRHAGE [None]
  - PLEURAL EFFUSION [None]
